FAERS Safety Report 7149455-2 (Version None)
Quarter: 2010Q4

REPORT INFORMATION
  Report Type: 
  Country: None (occurrence: None)
  Receive Date: 20101209
  Receipt Date: 20101118
  Transmission Date: 20110411
  Serious: No
  Sender: FDA-Public Use
  Company Number: US-PFIZER INC-2010153542

PATIENT

DRUGS (4)
  1. ALAVERT [Suspect]
     Indication: SNEEZING
     Route: 048
  2. ALAVERT [Suspect]
     Indication: LACRIMATION INCREASED
  3. ALAVERT [Suspect]
     Indication: EYE PRURITUS
  4. ALAVERT [Suspect]
     Indication: NASAL DISCOMFORT

REACTIONS (1)
  - DRUG INEFFECTIVE [None]
